FAERS Safety Report 17130750 (Version 1)
Quarter: 2019Q4

REPORT INFORMATION
  Report Type: Spontaneous
  Country: VN (occurrence: VN)
  Receive Date: 20191209
  Receipt Date: 20191209
  Transmission Date: 20200122
  Serious: Yes (Death)
  Sender: FDA-Public Use
  Company Number: VN-BAYER-2019-221777

PATIENT
  Age: 52 Year
  Sex: Female

DRUGS (1)
  1. STIVARGA [Suspect]
     Active Substance: REGORAFENIB
     Indication: HEPATOCELLULAR CARCINOMA
     Dosage: 160 MG, (4X40MG 3 WEEKS ON ONE WEEK OFF)
     Route: 048
     Dates: start: 201801, end: 201807

REACTIONS (2)
  - Death [Fatal]
  - Product supply issue [None]

NARRATIVE: CASE EVENT DATE: 201901
